FAERS Safety Report 20150552 (Version 1)
Quarter: 2021Q4

REPORT INFORMATION
  Report Type: Spontaneous
  Country: PT (occurrence: PT)
  Receive Date: 20211206
  Receipt Date: 20211206
  Transmission Date: 20220304
  Serious: Yes (Life-Threatening, Other)
  Sender: FDA-Public Use
  Company Number: PT-Accord-246549

PATIENT
  Age: 72 Year
  Sex: Male

DRUGS (2)
  1. CISPLATIN [Suspect]
     Active Substance: CISPLATIN
     Indication: Lung adenocarcinoma stage II
  2. VINORELBINE [Suspect]
     Active Substance: VINORELBINE TARTRATE
     Indication: Lung adenocarcinoma stage II

REACTIONS (5)
  - Dysgeusia [Unknown]
  - Polydipsia [Unknown]
  - Hyperglycaemic hyperosmolar nonketotic syndrome [Unknown]
  - Diabetic metabolic decompensation [Unknown]
  - Acute kidney injury [Unknown]
